FAERS Safety Report 20701857 (Version 1)
Quarter: 2022Q2

REPORT INFORMATION
  Report Type: Other
  Country: IT (occurrence: None)
  Receive Date: 20220412
  Receipt Date: 20220412
  Transmission Date: 20220720
  Serious: Yes (Other)
  Sender: FDA-Public Use
  Company Number: IT-ROCHE-3066363

PATIENT
  Age: 2 Year
  Sex: Male

DRUGS (8)
  1. MYCOPHENOLATE MOFETIL [Suspect]
     Active Substance: MYCOPHENOLATE MOFETIL
     Indication: Graft versus host disease
     Route: 065
  2. BEGELOMAB [Suspect]
     Active Substance: BEGELOMAB
     Indication: Graft versus host disease
     Route: 065
  3. FLUDARABINE [Concomitant]
     Active Substance: FLUDARABINE PHOSPHATE
     Dosage: FOR 5 DAYS
  4. TREOSULFAN [Concomitant]
     Active Substance: TREOSULFAN
     Dosage: 12 G/M2/DAY FROM DAY 7 TO DAY 5
  5. LAPINE T-LYMPHOCYTE IMMUNE GLOBULIN [Concomitant]
     Active Substance: LAPINE T-LYMPHOCYTE IMMUNE GLOBULIN
     Dosage: 2.5 MG/KG/DAY, WAS EMPLOYED FROM DAY-10 TO DAY-8
  6. METHYLPREDNISOLONE [Concomitant]
     Active Substance: METHYLPREDNISOLONE
  7. USTEKINUMAB [Concomitant]
     Active Substance: USTEKINUMAB
  8. RUXOLITINIB [Concomitant]
     Active Substance: RUXOLITINIB

REACTIONS (1)
  - Disease progression [Unknown]
